FAERS Safety Report 24996220 (Version 1)
Quarter: 2025Q1

REPORT INFORMATION
  Report Type: Report from Study
  Country: AR (occurrence: AR)
  Receive Date: 20250221
  Receipt Date: 20250221
  Transmission Date: 20250408
  Serious: Yes (Hospitalization)
  Sender: NOVARTIS
  Company Number: AR-002147023-NVSC2024AR241571

PATIENT
  Sex: Female

DRUGS (2)
  1. RIBOCICLIB [Suspect]
     Active Substance: RIBOCICLIB
     Indication: Breast cancer metastatic
     Route: 065
     Dates: start: 20241203
  2. RIBOCICLIB [Suspect]
     Active Substance: RIBOCICLIB
     Dosage: 2 DOSAGE FORM, QD (400 MG) FROM 10 FEB
     Route: 065

REACTIONS (9)
  - Gastritis [Unknown]
  - Hepatitis [Unknown]
  - Nausea [Unknown]
  - Abdominal discomfort [Unknown]
  - Fatigue [Unknown]
  - Anxiety [Unknown]
  - Alopecia [Unknown]
  - Diplopia [Unknown]
  - Decreased immune responsiveness [Unknown]
